FAERS Safety Report 9192360 (Version 3)
Quarter: 2013Q2

REPORT INFORMATION
  Report Type: Spontaneous
  Country: US (occurrence: US)
  Receive Date: 20130327
  Receipt Date: 20130620
  Transmission Date: 20140414
  Serious: No
  Sender: FDA-Public Use
  Company Number: US-JNJFOC-20130309721

PATIENT
  Age: 20 Year
  Sex: Male
  Weight: 72.58 kg

DRUGS (6)
  1. INVEGA SUSTENNA [Suspect]
     Indication: SCHIZOPHRENIA
     Route: 030
     Dates: start: 20130221, end: 20130221
  2. INVEGA SUSTENNA [Suspect]
     Indication: SCHIZOPHRENIA
     Route: 030
     Dates: start: 20130124, end: 20130124
  3. INVEGA SUSTENNA [Suspect]
     Indication: SCHIZOPHRENIA
     Route: 030
     Dates: start: 20121116, end: 20121116
  4. DEPAKOTE [Concomitant]
     Route: 065
  5. COGENTIN [Concomitant]
     Route: 048
  6. RISPERIDONE [Concomitant]
     Route: 065

REACTIONS (1)
  - Injection site pain [Recovered/Resolved]
